FAERS Safety Report 24136472 (Version 4)
Quarter: 2025Q4

REPORT INFORMATION
  Report Type: Report from Study
  Country: US (occurrence: US)
  Receive Date: 20240725
  Receipt Date: 20251009
  Transmission Date: 20260118
  Serious: Yes (Hospitalization, Other)
  Sender: RECORDATI
  Company Number: US-RECORDATI-2023005691

PATIENT
  Age: 66 Year
  Sex: Female
  Weight: 100.23 kg

DRUGS (32)
  1. ISTURISA [Suspect]
     Active Substance: OSILODROSTAT PHOSPHATE
     Indication: Pituitary-dependent Cushing^s syndrome
     Dosage: 1 MILLIGRAM, BID
     Route: 048
     Dates: start: 20211014
  2. ISTURISA [Suspect]
     Active Substance: OSILODROSTAT PHOSPHATE
     Dosage: 1 MILLIGRAM, BID
     Route: 048
     Dates: start: 20211014
  3. ISTURISA [Suspect]
     Active Substance: OSILODROSTAT PHOSPHATE
     Dosage: 1 MILLIGRAM, BID, TABLET
     Route: 048
     Dates: end: 20250530
  4. ISTURISA [Suspect]
     Active Substance: OSILODROSTAT PHOSPHATE
     Dosage: 1 MILLIGRAM, BID, TABLET
     Route: 048
     Dates: start: 20250630, end: 2025
  5. AMIODARONE HYDROCHLORIDE [Concomitant]
     Active Substance: AMIODARONE HYDROCHLORIDE
     Indication: Product used for unknown indication
     Dosage: 200 MG, EVERY DAY
     Route: 048
     Dates: start: 20201001
  6. ASPIRIN [Concomitant]
     Active Substance: ASPIRIN
     Indication: Product used for unknown indication
     Dosage: 81 MG, EVERY DAY
     Route: 048
     Dates: start: 20201001
  7. ATORVASTATIN CALCIUM [Concomitant]
     Active Substance: ATORVASTATIN CALCIUM
     Indication: Product used for unknown indication
     Dosage: 20 MG, EVERY DAY
     Route: 048
     Dates: start: 20201001
  8. DOCUSATE SODIUM [Concomitant]
     Active Substance: DOCUSATE SODIUM
     Indication: Product used for unknown indication
     Dosage: 100 MG, QD, CAPSULE (HS)
     Route: 048
     Dates: start: 20220803
  9. EXCEDRIN MIGRAINE [Concomitant]
     Active Substance: ACETAMINOPHEN\ASPIRIN\CAFFEINE
     Indication: Product used for unknown indication
     Dosage: 250-250-65 (UNITS NOT SPECIFIED), PRN
     Route: 048
     Dates: start: 20201001
  10. ZETIA [Concomitant]
     Active Substance: EZETIMIBE
     Indication: Product used for unknown indication
     Dosage: UNK
  11. FUROSEMIDE [Concomitant]
     Active Substance: FUROSEMIDE
     Indication: Product used for unknown indication
     Dosage: 20 MG EVERY DAY
     Route: 048
     Dates: start: 20201001
  12. GABAPENTIN [Concomitant]
     Active Substance: GABAPENTIN
     Indication: Product used for unknown indication
     Dosage: 100 MG, TID
     Route: 048
     Dates: start: 20201001
  13. GLIMEPIRIDE [Concomitant]
     Active Substance: GLIMEPIRIDE
     Indication: Product used for unknown indication
     Dosage: 4 MG, BID
     Route: 048
     Dates: start: 20201001
  14. HYDROCORTISONE [Concomitant]
     Active Substance: HYDROCORTISONE
     Indication: Product used for unknown indication
     Dosage: 10 MG, QD, (TABLET 10 MG)
     Route: 048
     Dates: start: 20220209
  15. LANTUS SOLOSTAR [Concomitant]
     Active Substance: INSULIN GLARGINE
     Indication: Product used for unknown indication
     Dosage: 50 UNIT/ML, BID
     Route: 058
     Dates: start: 20201001
  16. LEVOTHYROXINE SODIUM [Concomitant]
     Active Substance: LEVOTHYROXINE SODIUM
     Indication: Product used for unknown indication
     Dosage: 50 MICROGRAM, EVERY DAY
     Route: 048
     Dates: start: 20201001
  17. MYRBETRIQ [Concomitant]
     Active Substance: MIRABEGRON
     Indication: Product used for unknown indication
     Dosage: 50 MG EVERY DAY
     Route: 048
     Dates: start: 20201001
  18. OMEPRAZOLE [Concomitant]
     Active Substance: OMEPRAZOLE
     Indication: Product used for unknown indication
     Dosage: 40 MG, EVERY DAY
     Route: 048
     Dates: start: 20201001
  19. OXYMORPHONE [Concomitant]
     Active Substance: OXYMORPHONE
     Indication: Product used for unknown indication
  20. PENNSAID [Concomitant]
     Active Substance: DICLOFENAC SODIUM
     Indication: Product used for unknown indication
     Dosage: 2 PERCENT, BID, EXTERNAL
     Route: 061
     Dates: start: 20201001
  21. SERTRALINE HYDROCHLORIDE [Concomitant]
     Active Substance: SERTRALINE HYDROCHLORIDE
     Indication: Product used for unknown indication
     Dosage: 100 MG, BID
     Route: 048
     Dates: start: 20201001
  22. TYLENOL EXTRA STRENGTH [Concomitant]
     Active Substance: ACETAMINOPHEN
     Indication: Product used for unknown indication
     Dosage: 500 MG, PRN (AS NEEDED)
     Route: 048
     Dates: start: 20201001
  23. UREA [Concomitant]
     Active Substance: UREA
     Indication: Product used for unknown indication
     Dosage: 39 PERCENT, BID, EXTERNAL
     Route: 061
     Dates: start: 20201001
  24. VENLAFAXINE HCL [Concomitant]
     Active Substance: VENLAFAXINE HYDROCHLORIDE
     Indication: Product used for unknown indication
     Dosage: 300 MG, EVERY DAY, ER
     Route: 048
     Dates: start: 20201001
  25. VITAMIN C [Concomitant]
     Active Substance: ASCORBIC ACID
     Indication: Product used for unknown indication
     Dosage: 500 MG, TID
     Route: 048
     Dates: start: 20201001
  26. VITAMIN D [Concomitant]
     Active Substance: VITAMIN D NOS
     Indication: Product used for unknown indication
     Dosage: 25 MICROGRAM, BID
     Route: 048
     Dates: start: 20201001
  27. ZIANA [Concomitant]
     Active Substance: CLINDAMYCIN PHOSPHATE\TRETINOIN
     Indication: Product used for unknown indication
     Dosage: 1.2-0.025 PERCENT, EXTERNAL GEL, EVERY DAY (GEL 1.2-0-0.25 PERCENT)
     Route: 061
     Dates: start: 20220209
  28. METHENAMINE MANDELATE [Concomitant]
     Active Substance: METHENAMINE MANDELATE
     Indication: Product used for unknown indication
     Dosage: 1 GRAM, BID
     Route: 048
     Dates: start: 20201001
  29. EZETIMIBE [Concomitant]
     Active Substance: EZETIMIBE
     Indication: Product used for unknown indication
     Dosage: 10 MG, EVERY DAY
     Route: 048
     Dates: start: 20201001
  30. CEPHALEXIN [Concomitant]
     Active Substance: CEPHALEXIN
     Indication: Product used for unknown indication
     Dosage: 250 MG, QD, (CAPSULE 250 MG)
     Route: 048
     Dates: start: 20231208
  31. VITAMINS [Concomitant]
     Active Substance: VITAMINS
     Indication: Product used for unknown indication
     Dosage: 1 TABLET, EVERY DAY
     Route: 048
     Dates: start: 20201001
  32. BUTRANS [Concomitant]
     Active Substance: BUPRENORPHINE
     Indication: Product used for unknown indication
     Dosage: 15 MICROGRAM/HR, QW (PATCH)
     Route: 062
     Dates: start: 20231102

REACTIONS (11)
  - Infection [Not Recovered/Not Resolved]
  - Pneumonia [Unknown]
  - Wound sepsis [Unknown]
  - Osteomyelitis [Recovering/Resolving]
  - Urinary tract infection [Not Recovered/Not Resolved]
  - Adrenal insufficiency [Not Recovered/Not Resolved]
  - Diabetic wound [Recovered/Resolved]
  - Diabetic foot infection [Recovering/Resolving]
  - Diabetic wound [Recovering/Resolving]
  - Wound [Unknown]
  - Urinary tract infection [Recovered/Resolved]

NARRATIVE: CASE EVENT DATE: 20231006
